FAERS Safety Report 22152512 (Version 12)
Quarter: 2025Q1

REPORT INFORMATION
  Report Type: Report from Study
  Country: US (occurrence: US)
  Receive Date: 20230329
  Receipt Date: 20250120
  Transmission Date: 20250409
  Serious: Yes (Hospitalization)
  Sender: NOVARTIS
  Company Number: US-002147023-NVSC2023US070713

PATIENT
  Age: 49 Year
  Sex: Female

DRUGS (2)
  1. KESIMPTA [Suspect]
     Active Substance: OFATUMUMAB
     Indication: Product used for unknown indication
     Dosage: UNK, QW
     Route: 065
     Dates: start: 20200317
  2. KESIMPTA [Suspect]
     Active Substance: OFATUMUMAB
     Route: 065
     Dates: start: 20230331

REACTIONS (10)
  - Abdominal wall abscess [Recovered/Resolved]
  - Appendix disorder [Unknown]
  - Pain [Unknown]
  - Nausea [Recovered/Resolved]
  - COVID-19 [Unknown]
  - Polyp [Unknown]
  - Herpes zoster [Recovered/Resolved]
  - Sinusitis [Unknown]
  - Impaired healing [Unknown]
  - Suture related complication [Unknown]

NARRATIVE: CASE EVENT DATE: 20230317
